FAERS Safety Report 4395075-2 (Version None)
Quarter: 2004Q3

REPORT INFORMATION
  Report Type: 
  Country: None (occurrence: None)
  Receive Date: 20040706
  Receipt Date: 20040629
  Transmission Date: 20050211
  Serious: Yes (Hospitalization)
  Sender: FDA-Public Use
  Company Number: 2004-05-0666

PATIENT
  Sex: Male

DRUGS (1)
  1. ALBUTEROL [Suspect]
     Dosage: ORAL, AER INH
     Route: 048
     Dates: start: 19980101

REACTIONS (1)
  - HYPOXIA [None]
